FAERS Safety Report 6794574-3 (Version None)
Quarter: 2010Q2

REPORT INFORMATION
  Report Type: 
  Country: None (occurrence: None)
  Receive Date: 20100625
  Receipt Date: 20100617
  Transmission Date: 20101027
  Serious: Yes (Hospitalization, Other)
  Sender: FDA-Public Use
  Company Number: US-ELI_LILLY_AND_COMPANY-US201005004264

PATIENT
  Age: 71 Year
  Sex: Female
  Weight: 71.655 kg

DRUGS (2)
  1. BYETTA [Suspect]
     Dosage: 5 UG, UNKNOWN
     Dates: start: 20071213, end: 20080219
  2. BYETTA [Suspect]
     Dosage: 10 UG, UNKNOWN
     Dates: start: 20080220, end: 20090101

REACTIONS (3)
  - BREAST CANCER [None]
  - GALLBLADDER DISORDER [None]
  - GASTROINTESTINAL DISORDER [None]
